FAERS Safety Report 18210323 (Version 1)
Quarter: 2020Q3

REPORT INFORMATION
  Report Type: Spontaneous
  Country: US (occurrence: US)
  Receive Date: 20200829
  Receipt Date: 20200829
  Transmission Date: 20201103
  Serious: Yes (Other)
  Sender: FDA-Public Use
  Company Number: US-DRREDDYS-USA/USA/20/0126434

PATIENT
  Sex: Female

DRUGS (1)
  1. RISPERIDONE TABLETS 0.5 MG [Suspect]
     Active Substance: RISPERIDONE
     Indication: AGITATION
     Route: 048

REACTIONS (1)
  - Oculogyric crisis [Recovered/Resolved]
